FAERS Safety Report 9646272 (Version 1)
Quarter: 2013Q4

REPORT INFORMATION
  Report Type: Spontaneous
  Country: IT (occurrence: None)
  Receive Date: 20131024
  Receipt Date: 20131024
  Transmission Date: 20140711
  Serious: Yes (Other)
  Sender: FDA-Public Use
  Company Number: AUR-APL-2013-08785

PATIENT
  Age: 81 Year
  Sex: Female

DRUGS (9)
  1. PAROXETINE (PAROXETINE) [Suspect]
     Indication: DEPRESSION
  2. AMITRIPTYLINE (AMITRIPTYLINE) [Suspect]
     Indication: DEPRESSION
     Dosage: 20 MG, 1 IN 1 D, UNKNOWN
  3. NALOXONE / OXYCODONE [Suspect]
     Indication: PRODUCT USED FOR UNKNOWN INDICATION
     Dosage: OXYCODONE: 5 MG?/ NALOXONE: 2.5 MG, TWICE A DAY, UNKNOWN
  4. NITROGLYCERINE (GLYCERYL TRINITRATE) [Concomitant]
  5. SIMVASTATIN (SIMVASTATIN) [Concomitant]
  6. ALLOPURINOL [Concomitant]
  7. AMLODIPINE (AMLODIPINE) [Concomitant]
  8. LOSARTAN (LOSARTAN) [Concomitant]
  9. ASPIRIN (ACETYLSALICYLIC ACID) [Concomitant]

REACTIONS (15)
  - Iatrogenic injury [None]
  - Fall [None]
  - Erectile dysfunction [None]
  - Intervertebral disc protrusion [None]
  - Cardiac failure [None]
  - Cardiac valve disease [None]
  - Hypertensive cardiomyopathy [None]
  - Dyslipidaemia [None]
  - Depression [None]
  - Polyarthritis [None]
  - Delirium [None]
  - Agitation [None]
  - Anxiety [None]
  - Hallucination [None]
  - Insomnia [None]
